FAERS Safety Report 4925483-X (Version None)
Quarter: 2006Q1

REPORT INFORMATION
  Report Type: 
  Country: None (occurrence: None)
  Receive Date: 20060228
  Receipt Date: 20050225
  Transmission Date: 20060701
  Serious: No
  Sender: FDA-Public Use
  Company Number: US-GLAXOSMITHKLINE-A0547657A

PATIENT
  Age: 23 Year
  Sex: Female

DRUGS (4)
  1. LAMICTAL [Suspect]
     Indication: BIPOLAR I DISORDER
     Dosage: 25MG TWICE PER DAY
     Route: 048
  2. PAXIL [Suspect]
     Indication: BIPOLAR I DISORDER
     Dosage: 40MG PER DAY
     Route: 048
  3. SEROQUEL [Concomitant]
     Dosage: 400MG PER DAY
     Route: 065
  4. CLONAZEPAM [Concomitant]
     Dosage: 2MG THREE TIMES PER DAY
     Route: 065

REACTIONS (1)
  - RASH [None]
